FAERS Safety Report 4782361-7 (Version None)
Quarter: 2005Q3

REPORT INFORMATION
  Report Type: 
  Country: None (occurrence: None)
  Receive Date: 20050914
  Receipt Date: 20050613
  Transmission Date: 20060218
  Serious: Yes (Hospitalization)
  Sender: FDA-Public Use
  Company Number: 163-20785-05060177

PATIENT
  Age: 13 Year
  Sex: Female

DRUGS (4)
  1. THALOMID [Suspect]
     Indication: HEREDITARY HAEMORRHAGIC TELANGIECTASIA
     Dosage: 400 MG, DAILY, ORAL
     Route: 048
     Dates: start: 20030701
  2. STRATTERA [Concomitant]
  3. TRILEPTAL [Concomitant]
  4. PAXIL CR (PAROXETINE HYDROCHORODIE) [Concomitant]

REACTIONS (2)
  - CLUMSINESS [None]
  - NEUROPATHY PERIPHERAL [None]
